FAERS Safety Report 7430299-9 (Version None)
Quarter: 2011Q2

REPORT INFORMATION
  Report Type: 
  Country: None (occurrence: None)
  Receive Date: 20110421
  Receipt Date: 20110413
  Transmission Date: 20111010
  Serious: Yes (Hospitalization, Other)
  Sender: FDA-Public Use
  Company Number: US-ELI_LILLY_AND_COMPANY-US201103004338

PATIENT
  Sex: Male
  Weight: 82.54 kg

DRUGS (14)
  1. FENTANYL [Concomitant]
     Dosage: 150 UG, UNK
     Dates: start: 20110317
  2. FOLIC ACID [Concomitant]
     Dosage: 1 MG, UNKNOWN
     Route: 048
     Dates: start: 20110208
  3. SIMVASTATIN [Concomitant]
     Dosage: 20 MG, UNK
  4. VITAMIN B-12 [Concomitant]
     Dosage: 1000 UG, UNK
     Route: 030
     Dates: start: 20110210
  5. FENTANYL [Concomitant]
     Dosage: 250 UG, UNK
     Dates: start: 20110329
  6. ALIMTA [Suspect]
     Indication: LYMPHOMA
     Dosage: 1045 MG, UNK
     Route: 042
     Dates: start: 20110210
  7. ALIMTA [Suspect]
     Dosage: UNK
     Dates: start: 20110303
  8. PHENERGAN HCL [Concomitant]
     Dosage: 25 MG, UNK
     Dates: start: 20110309
  9. FENTANYL [Concomitant]
     Dosage: 225 UG, UNK
     Dates: start: 20110324
  10. MORPHINE [Concomitant]
     Dosage: 20MG/ML, UNKNOWN
  11. OTHER ANALGESICS AND ANTIPYRETICS [Concomitant]
  12. HYDROCORTISONE [Concomitant]
     Indication: ADRENAL INSUFFICIENCY
     Dosage: 20 MG, BID
     Route: 048
     Dates: start: 20101201
  13. FENTANYL [Concomitant]
     Dosage: 175 MG, UNK
     Dates: start: 20110322
  14. DEXAMETHASONE [Concomitant]
     Dosage: 2 MG, UNK

REACTIONS (7)
  - OFF LABEL USE [None]
  - ADRENAL INSUFFICIENCY [None]
  - NON-SMALL CELL LUNG CANCER METASTATIC [None]
  - ASTHENIA [None]
  - VOMITING [None]
  - NAUSEA [None]
  - DIARRHOEA [None]
